FAERS Safety Report 12378420 (Version 1)
Quarter: 2016Q2

REPORT INFORMATION
  Report Type: Spontaneous
  Country: CN (occurrence: CN)
  Receive Date: 20160517
  Receipt Date: 20160517
  Transmission Date: 20160815
  Serious: Yes (Other)
  Sender: FDA-Public Use
  Company Number: CN-OTSUKA-2016_010586

PATIENT
  Sex: Male

DRUGS (1)
  1. DACOGEN [Suspect]
     Active Substance: DECITABINE
     Indication: MYELODYSPLASTIC SYNDROME
     Dosage: 50 MG, 1 IN 1 DAY
     Route: 042
     Dates: start: 20150611, end: 20151017

REACTIONS (3)
  - Hepatic failure [Recovering/Resolving]
  - Bone marrow failure [Recovering/Resolving]
  - Pulmonary mycosis [Recovering/Resolving]
